FAERS Safety Report 7020616-6 (Version None)
Quarter: 2010Q3

REPORT INFORMATION
  Report Type: 
  Country: None (occurrence: None)
  Receive Date: 20100929
  Receipt Date: 20100924
  Transmission Date: 20110219
  Serious: Yes (Hospitalization)
  Sender: FDA-Public Use
  Company Number: A0883238A

PATIENT
  Age: 71 Year
  Sex: Male

DRUGS (10)
  1. ADVAIR DISKUS 100/50 [Suspect]
     Indication: ASTHMA
     Dosage: 1PUFF TWICE PER DAY
     Route: 055
     Dates: start: 20050101, end: 20100804
  2. ADVAIR DISKUS 100/50 [Suspect]
     Dosage: 1PUFF TWICE PER DAY
     Route: 055
     Dates: start: 20100808, end: 20100924
  3. NEBULIZER [Suspect]
  4. ALBUTEROL [Concomitant]
  5. CLARITIN [Concomitant]
  6. NASONEX [Concomitant]
  7. WARFARIN SODIUM [Concomitant]
  8. OMEPRAZOLE [Concomitant]
  9. METOPROLOL TARTRATE [Concomitant]
  10. PSYLLIUM HUSK [Concomitant]

REACTIONS (5)
  - ASTHMA [None]
  - CONDITION AGGRAVATED [None]
  - COUGH [None]
  - INCREASED UPPER AIRWAY SECRETION [None]
  - UPPER-AIRWAY COUGH SYNDROME [None]
